FAERS Safety Report 9083531 (Version 1)
Quarter: 2013Q1

REPORT INFORMATION
  Report Type: Report from Study
  Country: US (occurrence: US)
  Receive Date: 20130130
  Receipt Date: 20130130
  Transmission Date: 20140127
  Serious: No
  Sender: FDA-Public Use
  Company Number: US-ABBOTT-12P-163-0981872-00

PATIENT
  Age: 23 Year
  Sex: Female

DRUGS (7)
  1. HUMIRA [Suspect]
     Indication: CROHN^S DISEASE
     Dates: start: 20120815, end: 20120815
  2. HUMIRA [Suspect]
     Dates: start: 20120829, end: 20120829
  3. HUMIRA [Suspect]
     Dates: start: 20120915
  4. MELOXICAM [Suspect]
     Indication: PRODUCT USED FOR UNKNOWN INDICATION
     Dates: end: 20120904
  5. ALBUTEROL [Concomitant]
     Indication: PRODUCT USED FOR UNKNOWN INDICATION
  6. SUMATRIPTAN [Concomitant]
     Indication: PRODUCT USED FOR UNKNOWN INDICATION
  7. DEPO PROVERA [Concomitant]
     Indication: PRODUCT USED FOR UNKNOWN INDICATION

REACTIONS (3)
  - Hyperthyroidism [Unknown]
  - Injection site pain [Recovered/Resolved]
  - Drug ineffective [Unknown]
